FAERS Safety Report 6144020-8 (Version None)
Quarter: 2009Q2

REPORT INFORMATION
  Report Type: 
  Country: None (occurrence: None)
  Receive Date: 20090406
  Receipt Date: 20090326
  Transmission Date: 20091009
  Serious: Yes (Death)
  Sender: FDA-Public Use
  Company Number: US-AMGEN-US340374

PATIENT
  Sex: Male
  Weight: 76 kg

DRUGS (11)
  1. NPLATE [Suspect]
     Indication: IDIOPATHIC THROMBOCYTOPENIC PURPURA
     Route: 058
     Dates: start: 20090216, end: 20090223
  2. AVELOX [Concomitant]
     Route: 065
  3. PROVENTIL [Concomitant]
     Route: 065
  4. PROPRANOLOL [Concomitant]
     Route: 065
  5. PREDNISONE [Concomitant]
     Route: 065
  6. GUAIFENESIN [Concomitant]
     Route: 065
  7. DIOVAN [Concomitant]
     Route: 065
  8. HYDROCHLOROTHIAZIDE [Concomitant]
     Route: 065
  9. FLOVENT [Concomitant]
     Route: 065
  10. ATROVENT [Concomitant]
     Route: 065
  11. ACYCLOVIR [Concomitant]
     Route: 061

REACTIONS (1)
  - SEPSIS [None]
